FAERS Safety Report 16522378 (Version 6)
Quarter: 2020Q3

REPORT INFORMATION
  Report Type: Spontaneous
  Country: US (occurrence: US)
  Receive Date: 20190703
  Receipt Date: 20200921
  Transmission Date: 20201102
  Serious: No
  Sender: FDA-Public Use
  Company Number: US-PFIZER INC-2019280601

PATIENT
  Age: 67 Year
  Sex: Female
  Weight: 78.01 kg

DRUGS (4)
  1. DILANTIN [Suspect]
     Active Substance: PHENYTOIN
     Dosage: UNK, DAILY
  2. DILANTIN [Suspect]
     Active Substance: PHENYTOIN
     Dosage: 1 DF, 1X/DAY
  3. DILANTIN [Suspect]
     Active Substance: PHENYTOIN
     Indication: INJURY
     Dosage: UNK UNK, DAILY
     Dates: start: 1993
  4. DILANTIN [Suspect]
     Active Substance: PHENYTOIN
     Dosage: 2 CAPSULES, 2X/DAY

REACTIONS (8)
  - Confusional state [Unknown]
  - Off label use [Unknown]
  - Product use in unapproved indication [Unknown]
  - Disturbance in attention [Unknown]
  - Product administration error [Unknown]
  - Extra dose administered [Unknown]
  - Feeling abnormal [Unknown]
  - Memory impairment [Unknown]
